FAERS Safety Report 12172740 (Version 1)
Quarter: 2016Q1

REPORT INFORMATION
  Report Type: Spontaneous
  Country: US (occurrence: US)
  Receive Date: 20160311
  Receipt Date: 20160311
  Transmission Date: 20160526
  Serious: Yes (Hospitalization)
  Sender: FDA-Public Use
  Company Number: US-PFIZER INC-2016144138

PATIENT
  Age: 71 Year
  Sex: Female

DRUGS (13)
  1. LASIX [Concomitant]
     Active Substance: FUROSEMIDE
     Dosage: 120 MG, 1X/DAY (IN A.M.)
     Route: 048
     Dates: end: 20160227
  2. K-DUR [Concomitant]
     Active Substance: POTASSIUM CHLORIDE
     Dosage: 20 MEQ, 2X/DAY (AFTER MEALS)
     Route: 048
     Dates: end: 20160227
  3. ZOCOR [Concomitant]
     Active Substance: SIMVASTATIN
     Dosage: 40 MG, 1X/DAY (NIGHTLY)
     Route: 048
     Dates: end: 20160227
  4. ZYLOPRIM [Concomitant]
     Active Substance: ALLOPURINOL
     Dosage: 100 MG, DAILY (AFTER BREAKFAST)
     Route: 048
     Dates: end: 20160227
  5. ULTRAM [Concomitant]
     Active Substance: TRAMADOL HYDROCHLORIDE
     Indication: PAIN
     Dosage: 50 MG, AS NEEDED (SIX HOURS)
     Route: 048
     Dates: end: 20160227
  6. COUMADIN [Concomitant]
     Active Substance: WARFARIN SODIUM
     Dosage: 5 MG, UNK (ONE TABLET ON MONDAY, WEDNESDAY, FRIDAY, TWO TABLET ALL OTHER DAYS)
     Route: 048
     Dates: end: 20160227
  7. FOLVITE [Concomitant]
     Active Substance: FOLIC ACID
     Dosage: 1 MG, 1X/DAY
     Route: 048
     Dates: end: 20160227
  8. ASPIRIN. [Concomitant]
     Active Substance: ASPIRIN
     Dosage: 325 MG, 1X/DAY
     Route: 048
     Dates: end: 20160227
  9. TOPROL XL [Concomitant]
     Active Substance: METOPROLOL SUCCINATE
     Dosage: 50 MG, DAILY (WITH BREAKFAST)
     Route: 048
     Dates: end: 20160227
  10. NEURONTIN [Suspect]
     Active Substance: GABAPENTIN
     Dosage: 300 MG, 3X/DAY
     Route: 048
  11. LASIX [Concomitant]
     Active Substance: FUROSEMIDE
     Dosage: 80 MG, 1X/DAY (IN P.M.)
     Route: 048
     Dates: end: 20160227
  12. NORCO [Concomitant]
     Active Substance: ACETAMINOPHEN\HYDROCODONE BITARTRATE
     Indication: PAIN
     Dosage: 1 DF, AS NEEDED (HYDROCODONE: 10, ACETAMINOPHEN: 325 MG, EVERY 6  (SIX) HOURS)
     Route: 048
     Dates: end: 20160227
  13. KLOR-CON [Concomitant]
     Active Substance: POTASSIUM CHLORIDE
     Dosage: 20 MEQ, 2X/DAY (AFTER MEALS)
     Route: 048
     Dates: end: 20160227

REACTIONS (5)
  - Atrial fibrillation [Unknown]
  - Haematuria [Unknown]
  - Haemarthrosis [Unknown]
  - Deep vein thrombosis [Unknown]
  - Melaena [Unknown]
